FAERS Safety Report 4559106-9 (Version None)
Quarter: 2005Q1

REPORT INFORMATION
  Report Type: 
  Country: None (occurrence: None)
  Receive Date: 20050119
  Receipt Date: 20050110
  Transmission Date: 20050727
  Serious: Yes (Hospitalization)
  Sender: FDA-Public Use
  Company Number: K200500033

PATIENT
  Age: 74 Year
  Sex: Male

DRUGS (2)
  1. ALTACE [Suspect]
     Dosage: 2.5 MG, QD, ORAL
     Route: 048
  2. FLUDEX - SLOW RELEASE  (INDAPAMIDE) [Suspect]
     Dosage: 1.5 MG, QD, ORAL
     Route: 048

REACTIONS (9)
  - ABDOMINAL PAIN LOWER [None]
  - ABDOMINAL PAIN UPPER [None]
  - BLOOD ALKALINE PHOSPHATASE INCREASED [None]
  - CONDITION AGGRAVATED [None]
  - GAMMA-GLUTAMYLTRANSFERASE INCREASED [None]
  - GENERAL PHYSICAL HEALTH DETERIORATION [None]
  - HEPATIC CANCER METASTATIC [None]
  - HEPATOMEGALY [None]
  - RENAL FAILURE [None]
